FAERS Safety Report 5580745-0 (Version None)
Quarter: 2008Q1

REPORT INFORMATION
  Report Type: 
  Country: None (occurrence: None)
  Receive Date: 20080103
  Receipt Date: 20071228
  Transmission Date: 20080703
  Serious: Yes (Other)
  Sender: FDA-Public Use
  Company Number: JP-PFIZER INC-2007108348

PATIENT
  Age: 76 Year
  Sex: Female

DRUGS (5)
  1. ZOLOFT [Suspect]
     Route: 048
  2. ABILIFY [Concomitant]
     Route: 048
  3. RESLIN [Concomitant]
     Route: 048
  4. EURODIN [Concomitant]
     Route: 048
  5. SEDIEL [Concomitant]
     Route: 048

REACTIONS (1)
  - RHABDOMYOLYSIS [None]
